FAERS Safety Report 17322979 (Version 1)
Quarter: 2020Q1

REPORT INFORMATION
  Report Type: Spontaneous
  Country: US (occurrence: US)
  Receive Date: 20200124
  Receipt Date: 20200124
  Transmission Date: 20200409
  Serious: Yes (Life-Threatening, Hospitalization, Disabling)
  Sender: FDA-Public Use
  Company Number: None

PATIENT
  Age: 85 Year
  Sex: Female
  Weight: 60.1 kg

DRUGS (2)
  1. ASPIRIN 81 MG PO DAILY [Concomitant]
     Dates: start: 20180101, end: 20190326
  2. ELIQUIS [Suspect]
     Active Substance: APIXABAN
     Indication: ATRIAL FIBRILLATION
     Route: 048
     Dates: start: 20180101, end: 20190326

REACTIONS (4)
  - Confusional state [None]
  - Nausea [None]
  - Nervous system disorder [None]
  - Subdural haematoma [None]

NARRATIVE: CASE EVENT DATE: 20190326
